FAERS Safety Report 16748980 (Version 1)
Quarter: 2019Q3

REPORT INFORMATION
  Report Type: Report from Study
  Country: None (occurrence: CO)
  Receive Date: 20190828
  Receipt Date: 20190828
  Transmission Date: 20191005
  Serious: Yes (Other)
  Sender: FDA-Public Use
  Company Number: CO-ABBVIE-19K-036-2904429-00

PATIENT
  Age: 50 Year
  Sex: Female
  Weight: 56 kg

DRUGS (1)
  1. HUMIRA [Suspect]
     Active Substance: ADALIMUMAB
     Indication: PSORIATIC ARTHROPATHY
     Route: 058
     Dates: start: 20180719

REACTIONS (5)
  - Cough [Recovered/Resolved]
  - Malaise [Recovered/Resolved]
  - Amnesia [Recovering/Resolving]
  - Infection [Recovered/Resolved]
  - Immunosuppression [Recovered/Resolved]

NARRATIVE: CASE EVENT DATE: 201907
